FAERS Safety Report 21168562 (Version 2)
Quarter: 2022Q3

REPORT INFORMATION
  Report Type: Other
  Country: US (occurrence: None)
  Receive Date: 20220803
  Receipt Date: 20220804
  Transmission Date: 20221026
  Serious: No
  Sender: FDA-Public Use
  Company Number: US-ROCHE-3153128

PATIENT
  Sex: Female

DRUGS (1)
  1. OCREVUS [Suspect]
     Active Substance: OCRELIZUMAB
     Indication: Relapsing multiple sclerosis
     Dosage: INFUSE 300MG DAY 1 + DAY 15?DATE OF TREATMENT: 01/OCT/2018, 16/OCT/2018, 30/DEC/2021?LAST DATE OF TR
     Route: 042

REACTIONS (1)
  - COVID-19 [Not Recovered/Not Resolved]
